APPROVED DRUG PRODUCT: THIAMINE HYDROCHLORIDE
Active Ingredient: THIAMINE HYDROCHLORIDE
Strength: 200MG/ML
Dosage Form/Route: INJECTABLE;INJECTION
Application: A080571 | Product #002
Applicant: DR REDDYS LABORATORIES LTD
Approved: Approved Prior to Jan 1, 1982 | RLD: No | RS: Yes | Type: RX